FAERS Safety Report 9028753 (Version 1)
Quarter: 2013Q1

REPORT INFORMATION
  Report Type: Spontaneous
  Country: US (occurrence: US)
  Receive Date: 20130124
  Receipt Date: 20130124
  Transmission Date: 20140127
  Serious: Yes (Other)
  Sender: FDA-Public Use
  Company Number: US-PFIZER INC-2013028744

PATIENT
  Age: 62 Year
  Sex: Female
  Weight: 66.67 kg

DRUGS (5)
  1. LYRICA [Suspect]
     Indication: FIBROMYALGIA
     Dosage: UNK
  2. LYRICA [Suspect]
     Dosage: 150 MG, 2X/DAY
     Dates: start: 20121129
  3. OXYCODONE HYDROCHLORIDE [Suspect]
     Indication: PAIN
     Dosage: 10 MG, 2X/DAY
  4. TYLENOL [Suspect]
     Indication: OSTEOPOROSIS
     Dosage: 650MG TWO TABLETS A DAY
  5. TYLENOL [Suspect]
     Indication: FIBROMYALGIA

REACTIONS (11)
  - Vision blurred [Not Recovered/Not Resolved]
  - Dizziness [Unknown]
  - Fall [Unknown]
  - Excoriation [Unknown]
  - Ligament sprain [Unknown]
  - Arthralgia [Unknown]
  - Feeling abnormal [Unknown]
  - Drug dispensing error [Unknown]
  - Underdose [Unknown]
  - Malaise [Unknown]
  - Inappropriate schedule of drug administration [Unknown]
